FAERS Safety Report 5394295-8 (Version None)
Quarter: 2007Q3

REPORT INFORMATION
  Report Type: 
  Country: None (occurrence: None)
  Receive Date: 20070723
  Receipt Date: 20070607
  Transmission Date: 20080115
  Serious: No
  Sender: FDA-Public Use
  Company Number: A0652494A

PATIENT
  Sex: Female
  Weight: 75.6 kg

DRUGS (2)
  1. AVANDIA [Suspect]
     Indication: DRUG USE FOR UNKNOWN INDICATION
     Dosage: 4MG SEE DOSAGE TEXT
     Route: 048
     Dates: start: 20060130, end: 20060407
  2. ACTOS [Suspect]
     Indication: DRUG USE FOR UNKNOWN INDICATION
     Dosage: 15MG TWICE PER DAY
     Route: 048
     Dates: start: 20061117, end: 20070212

REACTIONS (1)
  - OEDEMA PERIPHERAL [None]
